FAERS Safety Report 10024305 (Version 1)
Quarter: 2014Q1

REPORT INFORMATION
  Report Type: Spontaneous
  Country: US (occurrence: None)
  Receive Date: 20140318
  Receipt Date: 20140318
  Transmission Date: 20141002
  Serious: Yes (Other)
  Sender: FDA-Public Use
  Company Number: None

PATIENT
  Age: 48 Year
  Sex: Female
  Weight: 77.11 kg

DRUGS (4)
  1. REUMOFAN PLUS [Suspect]
     Indication: ARTHRALGIA
     Route: 048
     Dates: start: 20130626, end: 20131106
  2. REUMOFAN PLUS [Suspect]
     Indication: OSTEOARTHRITIS
     Route: 048
     Dates: start: 20130626, end: 20131106
  3. REUMOFAN PLUS [Suspect]
     Indication: MYALGIA
     Route: 048
     Dates: start: 20130626, end: 20131106
  4. CORTICOSTEROID [Suspect]

REACTIONS (11)
  - Weight increased [None]
  - Oedema peripheral [None]
  - Vulvovaginal dryness [None]
  - Hunger [None]
  - Thirst [None]
  - Pollakiuria [None]
  - Oedema peripheral [None]
  - Blood glucose increased [None]
  - Arthralgia [None]
  - Vulvovaginal burning sensation [None]
  - Micturition urgency [None]
